FAERS Safety Report 7251494-8 (Version None)
Quarter: 2011Q1

REPORT INFORMATION
  Report Type: 
  Country: None (occurrence: None)
  Receive Date: 20110128
  Receipt Date: 20110128
  Transmission Date: 20110831
  Serious: Yes (Hospitalization)
  Sender: FDA-Public Use
  Company Number: PHHO2006AU06176

PATIENT
  Sex: Male
  Weight: 81.3 kg

DRUGS (5)
  1. STI571/CGP57148B [Suspect]
     Indication: CHRONIC MYELOID LEUKAEMIA
     Dosage: 800 MG, QD
     Route: 048
     Dates: start: 20060131, end: 20060411
  2. ATENOLOL [Concomitant]
     Indication: HYPERTENSION
  3. ASPIRIN [Concomitant]
     Indication: AGRANULOCYTOSIS
  4. VALPROATE BISMUTH [Concomitant]
     Indication: HYPERTENSION
  5. STI571/CGP57148B [Suspect]
     Dosage: 600 MG, QD
     Route: 048
     Dates: start: 20060418

REACTIONS (9)
  - NAUSEA [None]
  - REFLUX GASTRITIS [None]
  - WEIGHT DECREASED [None]
  - VOMITING [None]
  - DECREASED APPETITE [None]
  - HELICOBACTER GASTRITIS [None]
  - ABDOMINAL PAIN [None]
  - MALAISE [None]
  - HEADACHE [None]
